FAERS Safety Report 5888680-5 (Version None)
Quarter: 2008Q3

REPORT INFORMATION
  Report Type: 
  Country: None (occurrence: None)
  Receive Date: 20080916
  Receipt Date: 20080902
  Transmission Date: 20090109
  Serious: Yes (Other)
  Sender: FDA-Public Use
  Company Number: 2008BI021958

PATIENT
  Age: 28 Year
  Sex: Male

DRUGS (1)
  1. TYSABRI [Suspect]
     Indication: RELAPSING-REMITTING MULTIPLE SCLEROSIS
     Dosage: 300 MG; QM; IV
     Route: 042
     Dates: start: 20071015, end: 20080730

REACTIONS (7)
  - BLINDNESS [None]
  - EAR INFECTION [None]
  - HYPOAESTHESIA [None]
  - SCOTOMA [None]
  - TOXOCARIASIS [None]
  - TOXOPLASMOSIS [None]
  - UVEITIS [None]
